FAERS Safety Report 5729752-5 (Version None)
Quarter: 2008Q2

REPORT INFORMATION
  Report Type: 
  Country: None (occurrence: None)
  Receive Date: 20080506
  Receipt Date: 20080410
  Transmission Date: 20081010
  Serious: No
  Sender: FDA-Public Use
  Company Number: US-BOEHRINGER INGELHEIM GMBH, GERMANY-2008-BP-05769BP

PATIENT
  Sex: Male

DRUGS (6)
  1. FLOMAX [Suspect]
     Indication: BENIGN PROSTATIC HYPERPLASIA
     Route: 048
     Dates: start: 20080124, end: 20080408
  2. COUMADIN [Concomitant]
  3. DIOVAN [Concomitant]
     Indication: HYPERTENSION
  4. CADUET [Concomitant]
  5. XALATAN [Concomitant]
  6. COSOPT [Concomitant]

REACTIONS (8)
  - ARTHRALGIA [None]
  - FLUID RETENTION [None]
  - JOINT SWELLING [None]
  - OEDEMA PERIPHERAL [None]
  - RASH [None]
  - RASH ERYTHEMATOUS [None]
  - SKIN WARM [None]
  - SYNOVIAL CYST [None]
